FAERS Safety Report 5209369-1 (Version None)
Quarter: 2006Q4

REPORT INFORMATION
  Report Type: 
  Country: None (occurrence: None)
  Receive Date: 20061101
  Receipt Date: 20060630
  Transmission Date: 20070319
  Serious: No
  Sender: FDA-Public Use
  Company Number: 2006PV016771

PATIENT
  Age: 55 Year
  Sex: Male

DRUGS (3)
  1. SYMLIN [Suspect]
     Indication: DIABETES MELLITUS NON-INSULIN-DEPENDENT
     Dosage: SEE IMAGE
     Route: 058
  2. NPH INSULIN [Concomitant]
  3. REGULAR INSULIN [Concomitant]

REACTIONS (1)
  - OEDEMA PERIPHERAL [None]
